FAERS Safety Report 9461869 (Version 1)
Quarter: 2013Q3

REPORT INFORMATION
  Report Type: Spontaneous
  Country: US (occurrence: None)
  Receive Date: 20130815
  Receipt Date: 20130815
  Transmission Date: 20140515
  Serious: No
  Sender: FDA-Public Use
  Company Number: None

PATIENT
  Age: 49 Year
  Sex: Female
  Weight: 89.81 kg

DRUGS (5)
  1. COPAXONE [Suspect]
     Indication: MULTIPLE SCLEROSIS
     Route: 058
     Dates: start: 201106
  2. AMPYRA [Concomitant]
  3. ATENOLOL/CHLORTHALIDOME [Concomitant]
  4. LEXAPRO [Concomitant]
  5. PROTONIX [Concomitant]

REACTIONS (2)
  - Rash [None]
  - Psoriasis [None]
